FAERS Safety Report 6399988-1 (Version None)
Quarter: 2009Q4

REPORT INFORMATION
  Report Type: 
  Country: None (occurrence: None)
  Receive Date: 20091014
  Receipt Date: 20091005
  Transmission Date: 20100525
  Serious: Yes (Other)
  Sender: FDA-Public Use
  Company Number: US-ELI_LILLY_AND_COMPANY-US200909006329

PATIENT
  Sex: Female

DRUGS (10)
  1. BYETTA [Suspect]
     Indication: TYPE 2 DIABETES MELLITUS
     Dosage: 5 UG, UNK
     Dates: start: 20090908, end: 20090917
  2. METFORMIN HYDROCHLORIDE [Concomitant]
     Indication: DIABETES MELLITUS
     Dosage: 1000 MG, 2/D
     Dates: start: 20090908
  3. ZETIA [Concomitant]
     Dosage: 10 MG, DAILY (1/D)
  4. ESTROGENS ESTERIFIED W/METHYLTESTOSTERONE [Concomitant]
     Indication: HORMONE REPLACEMENT THERAPY
     Dosage: UNK, DAILY (1/D)
     Dates: start: 20090701
  5. CRESTOR [Concomitant]
     Indication: LIPIDS
     Dosage: 10 MG, DAILY (1/D)
     Dates: start: 20090501
  6. DIOVAN [Concomitant]
     Indication: HYPERTENSION
     Dosage: 160 MG, DAILY (1/D)
  7. AMBIEN [Concomitant]
     Indication: INSOMNIA
     Dosage: 10 MG, AS NEEDED
     Dates: start: 20090501
  8. AMLODIPINE BESYLATE AND BENAZEPRIL HYDROCHLORIDE [Concomitant]
     Indication: HYPERTENSION
     Dosage: UNK, DAILY (1/D)
     Dates: start: 20081201
  9. HYDROXYZINE [Concomitant]
     Indication: PRURITUS
     Dosage: UNK, AS NEEDED
  10. LASIX [Concomitant]
     Indication: OEDEMA
     Dosage: 20 MG, DAILY (1/D)

REACTIONS (2)
  - DEHYDRATION [None]
  - PANCREATITIS [None]
